FAERS Safety Report 16658423 (Version 1)
Quarter: 2019Q3

REPORT INFORMATION
  Report Type: Spontaneous
  Country: US (occurrence: US)
  Receive Date: 20190618
  Receipt Date: 20190618
  Transmission Date: 20191004
  Serious: Yes (Death)
  Sender: FDA-Public Use
  Company Number: None

PATIENT
  Age: 56 Year
  Sex: Male
  Weight: 100.7 kg

DRUGS (8)
  1. GEODON [Concomitant]
     Active Substance: ZIPRASIDONE HYDROCHLORIDE\ZIPRASIDONE MESYLATE
  2. FOLATE [Concomitant]
     Active Substance: FOLATE SODIUM
  3. PAROXETINE. [Concomitant]
     Active Substance: PAROXETINE
  4. HYDROXYZINE PAM [Concomitant]
     Active Substance: HYDROXYZINE PAMOATE
  5. BUPROPION HCL [Concomitant]
     Active Substance: BUPROPION HYDROCHLORIDE
  6. VITAMIN B12 [Concomitant]
     Active Substance: CYANOCOBALAMIN
  7. IBUPROFEN. [Concomitant]
     Active Substance: IBUPROFEN
  8. ZIPRASIDONE. [Suspect]
     Active Substance: ZIPRASIDONE
     Indication: SCHIZOAFFECTIVE DISORDER
     Dosage: ?          QUANTITY:1 DF DOSAGE FORM;?
     Route: 048
     Dates: start: 20190123, end: 20190607

REACTIONS (12)
  - Incontinence [None]
  - Insomnia [None]
  - Oedema [None]
  - Dizziness [None]
  - Decreased appetite [None]
  - Pyrexia [None]
  - Tremor [None]
  - Hallucination [None]
  - Weight increased [None]
  - Dyspnoea [None]
  - Incoherent [None]
  - Balance disorder [None]

NARRATIVE: CASE EVENT DATE: 20190123
